FAERS Safety Report 7260787-X (Version None)
Quarter: 2011Q1

REPORT INFORMATION
  Report Type: 
  Country: None (occurrence: None)
  Receive Date: 20110130
  Receipt Date: 20101123
  Transmission Date: 20110831
  Serious: Yes (Other)
  Sender: FDA-Public Use
  Company Number: US-ABBOTT-10P-163-0687156-00

PATIENT
  Sex: Male
  Weight: 108.96 kg

DRUGS (13)
  1. DIPHENOXYLATE HCL + ATROPINE SULFATE [Concomitant]
     Indication: DIARRHOEA
     Route: 048
  2. WELCHOL [Concomitant]
     Indication: CROHN'S DISEASE
     Route: 048
  3. FLUTICASONE PROPIONATE [Concomitant]
     Indication: ASTHMA
     Route: 055
  4. VENTOLIN HFA [Concomitant]
     Indication: INHALATION THERAPY
     Route: 055
  5. HUMIRA [Suspect]
     Indication: CROHN'S DISEASE
     Route: 058
     Dates: start: 20080101
  6. CRESTOR [Concomitant]
     Indication: BLOOD CHOLESTEROL INCREASED
     Route: 048
  7. ACTONEL [Concomitant]
     Indication: MINERAL SUPPLEMENTATION
     Route: 048
  8. TOPROL-XL [Concomitant]
     Indication: MITRAL VALVE INCOMPETENCE
     Route: 048
  9. NEXIUM [Concomitant]
     Indication: GASTROOESOPHAGEAL REFLUX DISEASE
     Route: 048
  10. ASPIRIN [Concomitant]
     Indication: CARDIOVASCULAR EVENT PROPHYLAXIS
     Route: 048
  11. HYDROCHLOROTHIAZIDE [Concomitant]
     Indication: DIURETIC THERAPY
     Route: 048
  12. BUPROPION [Concomitant]
     Indication: AFFECTIVE DISORDER
     Route: 048
  13. MELOXICAM [Concomitant]
     Indication: ARTHRALGIA
     Route: 048
     Dates: start: 20100701, end: 20101123

REACTIONS (4)
  - HYPERHIDROSIS [None]
  - FATIGUE [None]
  - CHRONIC LYMPHOCYTIC LEUKAEMIA [None]
  - FEELING HOT [None]
